FAERS Safety Report 4745573-4 (Version None)
Quarter: 2005Q3

REPORT INFORMATION
  Report Type: 
  Country: None (occurrence: None)
  Receive Date: 20050815
  Receipt Date: 20050801
  Transmission Date: 20060218
  Serious: Yes (Hospitalization)
  Sender: FDA-Public Use
  Company Number: 95/04169-USA

PATIENT
  Age: 32 Year
  Sex: Female

DRUGS (1)
  1. BETASERON [Suspect]
     Indication: MULTIPLE SCLEROSIS
     Dosage: 8 MIU, EVERY 2D, SUBCUTANEOUS
     Route: 058
     Dates: start: 19940101, end: 19951001

REACTIONS (4)
  - DRUG HYPERSENSITIVITY [None]
  - INJECTION SITE ABSCESS [None]
  - NECROTISING FASCIITIS [None]
  - SKIN GRAFT [None]
